FAERS Safety Report 6090011-5 (Version None)
Quarter: 2009Q1

REPORT INFORMATION
  Report Type: 
  Country: None (occurrence: None)
  Receive Date: 20090220
  Receipt Date: 20090216
  Transmission Date: 20090719
  Serious: Yes (Hospitalization)
  Sender: FDA-Public Use
  Company Number: FEI2009-0332

PATIENT
  Age: 20 Year
  Sex: Female
  Weight: 42.1845 kg

DRUGS (1)
  1. PARAGARD T 380A [Suspect]
     Indication: CONTRACEPTION
     Dosage: INTRA-UTERINE
     Route: 015
     Dates: start: 20081001, end: 20081101

REACTIONS (4)
  - ADNEXA UTERI PAIN [None]
  - HYPOMENORRHOEA [None]
  - MENSTRUATION IRREGULAR [None]
  - NAUSEA [None]
